FAERS Safety Report 6929153-8 (Version None)
Quarter: 2010Q3

REPORT INFORMATION
  Report Type: 
  Country: None (occurrence: None)
  Receive Date: 20100817
  Receipt Date: 20100811
  Transmission Date: 20110219
  Serious: Yes (Hospitalization, Disabling, Other)
  Sender: FDA-Public Use
  Company Number: US-MERCK-0905USA00170

PATIENT
  Age: 73 Year
  Sex: Female
  Weight: 41 kg

DRUGS (4)
  1. FOSAMAX [Suspect]
     Indication: OSTEOPOROSIS
     Route: 048
     Dates: start: 19961101
  2. FOSAMAX [Suspect]
     Route: 048
     Dates: start: 20020101, end: 20060214
  3. FOSAMAX [Suspect]
     Route: 048
     Dates: start: 20060601, end: 20060901
  4. CALCIUM (UNSPECIFIED) AND VITAMIN D (UNSPECIFIED) [Concomitant]
     Indication: OSTEOPOROSIS
     Route: 065

REACTIONS (52)
  - ANXIETY [None]
  - ARTHROPATHY [None]
  - BALANCE DISORDER [None]
  - BENIGN BREAST NEOPLASM [None]
  - BRUXISM [None]
  - CATARACT [None]
  - CERVICAL VERTEBRAL FRACTURE [None]
  - CHONDROCALCINOSIS PYROPHOSPHATE [None]
  - CHRONIC OBSTRUCTIVE PULMONARY DISEASE [None]
  - COLITIS [None]
  - COMPRESSION FRACTURE [None]
  - CONTUSION [None]
  - DEHYDRATION [None]
  - DENTAL CARIES [None]
  - DEPRESSION [None]
  - DIARRHOEA [None]
  - DIPLOPIA [None]
  - DIVERTICULITIS [None]
  - DIVERTICULUM [None]
  - EXCORIATION [None]
  - EXOSTOSIS [None]
  - FALL [None]
  - GAIT DISTURBANCE [None]
  - GASTRITIS [None]
  - GASTROOESOPHAGEAL REFLUX DISEASE [None]
  - GINGIVAL ABSCESS [None]
  - HYPERLIPIDAEMIA [None]
  - HYPERTENSION [None]
  - IMPAIRED HEALING [None]
  - INTERVERTEBRAL DISC DEGENERATION [None]
  - JAW DISORDER [None]
  - LOWER GASTROINTESTINAL HAEMORRHAGE [None]
  - MOUTH ULCERATION [None]
  - NECK PAIN [None]
  - ORAL DISORDER [None]
  - ORAL INFECTION [None]
  - ORAL TORUS [None]
  - OSTEOARTHRITIS [None]
  - OSTEOMYELITIS [None]
  - OSTEONECROSIS OF JAW [None]
  - OVERDOSE [None]
  - PAIN [None]
  - PALPITATIONS [None]
  - PANIC ATTACK [None]
  - SCOLIOSIS [None]
  - SPINAL COLUMN STENOSIS [None]
  - SPONDYLOLISTHESIS [None]
  - SUICIDE ATTEMPT [None]
  - TONSILLECTOMY [None]
  - UPPER RESPIRATORY TRACT INFECTION [None]
  - URINARY TRACT INFECTION [None]
  - WEIGHT DECREASED [None]
